FAERS Safety Report 11514216 (Version 1)
Quarter: 2015Q3

REPORT INFORMATION
  Report Type: Spontaneous
  Country: US (occurrence: US)
  Receive Date: 20150903
  Receipt Date: 20150903
  Transmission Date: 20151125
  Serious: No
  Sender: FDA-Public Use
  Company Number: US-ELI_LILLY_AND_COMPANY-US201211000880

PATIENT
  Age: 62 Year
  Sex: Female

DRUGS (2)
  1. KLONOPIN [Concomitant]
     Active Substance: CLONAZEPAM
  2. CYMBALTA [Suspect]
     Active Substance: DULOXETINE HYDROCHLORIDE
     Indication: FIBROMYALGIA
     Dosage: 20 MG, QD (1/2 CAPSULE CONTENTS IN APPLESAUCE DAILY)

REACTIONS (3)
  - Wrong technique in product usage process [Unknown]
  - Alopecia [Unknown]
  - Memory impairment [Unknown]
